FAERS Safety Report 11127638 (Version 3)
Quarter: 2015Q3

REPORT INFORMATION
  Report Type: Spontaneous
  Country: US (occurrence: US)
  Receive Date: 20150521
  Receipt Date: 20150812
  Transmission Date: 20151125
  Serious: Yes (Life-Threatening, Hospitalization)
  Sender: FDA-Public Use
  Company Number: US-BAYER-2015-254339

PATIENT
  Age: 39 Year
  Sex: Female
  Weight: 63.49 kg

DRUGS (2)
  1. MIRENA [Suspect]
     Active Substance: LEVONORGESTREL
     Indication: CONTRACEPTION
     Dosage: 20 MCG/24HR, CONT
     Route: 015
     Dates: start: 20071101, end: 20131115
  2. SEASONALE [Concomitant]
     Active Substance: ETHINYL ESTRADIOL\LEVONORGESTREL
     Dosage: UNK
     Dates: start: 201308, end: 201412

REACTIONS (7)
  - Device use error [None]
  - Device difficult to use [None]
  - Injury [None]
  - Infection [None]
  - Uterine perforation [None]
  - Abdominal pain [None]
  - General physical health deterioration [None]

NARRATIVE: CASE EVENT DATE: 20131115
